FAERS Safety Report 22182192 (Version 1)
Quarter: 2023Q2

REPORT INFORMATION
  Report Type: Spontaneous
  Country: NL (occurrence: NL)
  Receive Date: 20230406
  Receipt Date: 20230406
  Transmission Date: 20230721
  Serious: Yes (Other)
  Sender: FDA-Public Use
  Company Number: None

PATIENT
  Sex: Female
  Weight: 104 kg

DRUGS (2)
  1. HYDROCHLOROTHIAZIDE [Suspect]
     Active Substance: HYDROCHLOROTHIAZIDE
     Indication: Blood pressure measurement
     Dosage: 12.5 MILLIGRAM DAILY; 1 X PER DAY
     Route: 065
     Dates: start: 20180401
  2. METOPROLOLSUCCINAAT MYLAN [Concomitant]
     Indication: Product used for unknown indication
     Dosage: 1 DOSAGE FORMS DAILY; 1 PER DAY,  METOPROLOLSUCCINAAT MYLAN RET 100 TABL MVA  95MG
     Route: 065

REACTIONS (1)
  - Dental caries [Not Recovered/Not Resolved]
